FAERS Safety Report 24311956 (Version 1)
Quarter: 2024Q3

REPORT INFORMATION
  Report Type: Spontaneous
  Country: US (occurrence: None)
  Receive Date: 20240911
  Receipt Date: 20240911
  Transmission Date: 20241016
  Serious: Yes (Other)
  Sender: Public
  Company Number: None

PATIENT
  Sex: Female

DRUGS (1)
  1. CIMZIA [Suspect]
     Active Substance: CERTOLIZUMAB PEGOL
     Dosage: OTHER FREQUENCY : FIRST LOADING DOSE;?
     Route: 058
     Dates: start: 20240909

REACTIONS (5)
  - Headache [None]
  - Urticaria [None]
  - Pruritus [None]
  - Muscle spasms [None]
  - Gait inability [None]
